FAERS Safety Report 10193252 (Version 1)
Quarter: 2014Q2

REPORT INFORMATION
  Report Type: Spontaneous
  Country: US (occurrence: US)
  Receive Date: 20140524
  Receipt Date: 20140524
  Transmission Date: 20141212
  Serious: No
  Sender: FDA-Public Use
  Company Number: US-SA-2013SA120333

PATIENT
  Age: 42 Year
  Sex: Female

DRUGS (2)
  1. SOLOSTAR [Suspect]
     Indication: TYPE 1 DIABETES MELLITUS
     Dosage: PRODUCT STARTED THREE-FOUR YEARS AGO.
  2. LANTUS SOLOSTAR [Suspect]
     Indication: TYPE 1 DIABETES MELLITUS
     Dosage: PRODUCT STARTED THREE-FOUR YEARS AGO. DOSE: 55AM/55PM. DOSE:55 UNIT(S)
     Route: 058

REACTIONS (2)
  - Visual impairment [Unknown]
  - Hyperglycaemia [Unknown]
